FAERS Safety Report 4320226-5 (Version None)
Quarter: 2004Q1

REPORT INFORMATION
  Report Type: 
  Country: None (occurrence: None)
  Receive Date: 20040317
  Receipt Date: 20040303
  Transmission Date: 20041129
  Serious: Yes (Hospitalization)
  Sender: FDA-Public Use
  Company Number: 2004AP01423

PATIENT
  Age: 49 Year
  Sex: Male

DRUGS (23)
  1. IRESSA [Suspect]
     Indication: ADENOCARCINOMA
     Dosage: 250 MG DAILY PO
     Route: 048
     Dates: start: 20030709, end: 20030721
  2. IRESSA [Suspect]
     Indication: NON-SMALL CELL LUNG CANCER
     Dosage: 250 MG DAILY PO
     Route: 048
     Dates: start: 20030709, end: 20030721
  3. IRESSA [Suspect]
     Indication: ADENOCARCINOMA
     Dosage: 250 MG DAILY PO
     Route: 048
     Dates: start: 20030805, end: 20030811
  4. IRESSA [Suspect]
     Indication: NON-SMALL CELL LUNG CANCER
     Dosage: 250 MG DAILY PO
     Route: 048
     Dates: start: 20030805, end: 20030811
  5. IRESSA [Suspect]
     Indication: ADENOCARCINOMA
     Dosage: 250 MG DAILY PO
     Route: 048
     Dates: start: 20030819, end: 20030826
  6. IRESSA [Suspect]
     Indication: NON-SMALL CELL LUNG CANCER
     Dosage: 250 MG DAILY PO
     Route: 048
     Dates: start: 20030819, end: 20030826
  7. PRIMPERAN INJ [Concomitant]
  8. LOXONIN [Concomitant]
  9. CYTOTEC [Concomitant]
  10. DOGMATYL [Concomitant]
  11. DUROTEP JANSSEN [Concomitant]
  12. SEVEN EP [Concomitant]
  13. TETRAMIDE [Concomitant]
  14. SELBEX [Concomitant]
  15. ALLELOCK [Concomitant]
  16. BIOFERMIN [Concomitant]
  17. CRAVIT [Concomitant]
  18. PL GRAN. [Concomitant]
  19. DASEN [Concomitant]
  20. PICIBANIL [Concomitant]
  21. CARBOPLATIN [Concomitant]
  22. PACLITAXEL [Concomitant]
  23. RADIATION THERAPY [Concomitant]

REACTIONS (6)
  - BLOOD UREA INCREASED [None]
  - FREQUENT BOWEL MOVEMENTS [None]
  - LIVER DISORDER [None]
  - LOOSE STOOLS [None]
  - PARONYCHIA [None]
  - RASH [None]
